FAERS Safety Report 16941217 (Version 1)
Quarter: 2019Q4

REPORT INFORMATION
  Report Type: Spontaneous
  Country: US (occurrence: US)
  Receive Date: 20191019
  Receipt Date: 20191019
  Transmission Date: 20200122
  Serious: Yes (Life-Threatening, Hospitalization, Disabling)
  Sender: FDA-Public Use
  Company Number: None

PATIENT
  Age: 68 Year
  Sex: Male
  Weight: 195 kg

DRUGS (4)
  1. PREGABALIN 150 MG GENERIC FOR LYRICA [Suspect]
     Active Substance: PREGABALIN
     Indication: SCIATICA
     Dosage: ?          QUANTITY:1 CAPSULE(S);?
     Route: 048
  2. PREGABALIN 150 MG GENERIC FOR LYRICA [Suspect]
     Active Substance: PREGABALIN
     Indication: INTERVERTEBRAL DISC PROTRUSION
     Dosage: ?          QUANTITY:1 CAPSULE(S);?
     Route: 048
  3. MULTIVITAMIN [Concomitant]
     Active Substance: VITAMINS
  4. FISH OIL [Concomitant]
     Active Substance: FISH OIL

REACTIONS (3)
  - Pulmonary embolism [None]
  - Atrial fibrillation [None]
  - Peripheral embolism [None]

NARRATIVE: CASE EVENT DATE: 20190921
